FAERS Safety Report 4315241-1 (Version None)
Quarter: 2004Q1

REPORT INFORMATION
  Report Type: 
  Country: None (occurrence: None)
  Receive Date: 20040309
  Receipt Date: 20040226
  Transmission Date: 20041129
  Serious: Yes (Death)
  Sender: FDA-Public Use
  Company Number: NSADSS2001033977

PATIENT
  Age: 64 Year
  Sex: Male

DRUGS (6)
  1. REMICADE [Suspect]
     Indication: POLYARTHRITIS
     Dosage: 200 MG, 1 IN 1 AS NECESSARY, INTRAVENOUS DRIP
     Route: 041
     Dates: start: 20011024, end: 20011024
  2. METHOTREXATE [Concomitant]
  3. CALCORT (DEFLAZACORT) [Concomitant]
  4. VIOXX [Concomitant]
  5. FOLVITE    (FOLIC ACID) [Concomitant]
  6. CALCIUM CARBONATE [Concomitant]

REACTIONS (2)
  - PNEUMONIA [None]
  - VENTRICULAR FIBRILLATION [None]
